FAERS Safety Report 23225968 (Version 1)
Quarter: 2023Q4

REPORT INFORMATION
  Report Type: Spontaneous
  Country: CA (occurrence: CA)
  Receive Date: 20231124
  Receipt Date: 20231124
  Transmission Date: 20240110
  Serious: Yes (Hospitalization, Other)
  Sender: FDA-Public Use
  Company Number: CA-BAXTER-2023BAX036480

PATIENT
  Age: 3 Year
  Sex: Male
  Weight: 13 kg

DRUGS (21)
  1. DOXORUBICIN [Suspect]
     Active Substance: DOXORUBICIN
     Indication: Acute lymphocytic leukaemia
     Dosage: 17 MG, DOSAGE FORM: INJECTION
     Route: 065
  2. CYTARABINE [Suspect]
     Active Substance: CYTARABINE
     Indication: Acute lymphocytic leukaemia
     Dosage: 40 MG, DOSAGE FORM: NOT SPECIFIED
     Route: 065
  3. DEXAMETHASONE [Suspect]
     Active Substance: DEXAMETHASONE
     Indication: Acute lymphocytic leukaemia
     Dosage: 5 MG, DOSAGE FORM: NOT SPECIFIED
     Route: 065
  4. HYDROCORTISONE [Suspect]
     Active Substance: HYDROCORTISONE
     Indication: Acute lymphocytic leukaemia
     Dosage: 15 MG, DOSAGE FORM: NOT SPECIFIED
     Route: 065
  5. MERCAPTOPURINE [Suspect]
     Active Substance: MERCAPTOPURINE
     Indication: Acute lymphocytic leukaemia
     Dosage: 14.25 MG, DOSAGE FORM: NOT SPECIFIED
     Route: 065
  6. METHOTREXATE [Suspect]
     Active Substance: METHOTREXATE
     Indication: Acute lymphocytic leukaemia
     Dosage: 12 MG, DOSAGE FORM: NOT SPECIFIED
     Route: 065
  7. ONCASPAR [Suspect]
     Active Substance: PEGASPARGASE
     Indication: Acute lymphocytic leukaemia
     Dosage: 1425 UNITS, DOSAGE FORM: NOT SPECIFIED
     Route: 065
  8. VINCRISTINE SULFATE [Suspect]
     Active Substance: VINCRISTINE SULFATE
     Indication: Acute lymphocytic leukaemia
     Dosage: 1.1 MG, DOSAGE FORM: NOT SPECIFIED
     Route: 065
  9. ZINECARD [Suspect]
     Active Substance: DEXRAZOXANE HYDROCHLORIDE
     Indication: Acute lymphocytic leukaemia
     Dosage: 170 MG, DOSAGE FORM: POWDER FOR SOLUTION INTRAVENOUS
     Route: 065
  10. ACETAMINOPHEN [Concomitant]
     Active Substance: ACETAMINOPHEN
     Dosage: UNK, DOSAGE FORM: NOT SPECIFIED
     Route: 065
  11. DIMENHYDRINATE [Concomitant]
     Active Substance: DIMENHYDRINATE
     Dosage: UNK, DOSAGE FORM: NOT SPECIFIED
     Route: 065
  12. DIPHENHYDRAMINE [Concomitant]
     Active Substance: DIPHENHYDRAMINE
     Dosage: UNK, DOSAGE FORM: NOT SPECIFIED
     Route: 065
  13. FAMOTIDINE [Concomitant]
     Active Substance: FAMOTIDINE
     Dosage: UNK, DOSAGE FORM: NOT SPECIFIED
     Route: 065
  14. FLUTICASONE [Concomitant]
     Active Substance: FLUTICASONE
     Dosage: UNK, DOSAGE FORM: NOT SPECIFIED
     Route: 065
  15. HYDROCORTISONE [Concomitant]
     Active Substance: HYDROCORTISONE
     Dosage: UNK, DOSAGE FORM: NOT SPECIFIED
     Route: 065
  16. LANSOPRAZOLE [Concomitant]
     Active Substance: LANSOPRAZOLE
     Dosage: UNK, DOSAGE FORM: CAPSULE, DELAYED RELEASE
     Route: 065
  17. MORPHINE [Concomitant]
     Active Substance: MORPHINE
     Dosage: UNK, DOSAGE FORM: NOT SPECIFIED
     Route: 065
  18. OLANZAPINE [Concomitant]
     Active Substance: OLANZAPINE
     Dosage: UNK, DOSAGE FORM: NOT SPECIFIED
     Route: 065
  19. ONDANSETRON [Concomitant]
     Active Substance: ONDANSETRON
     Dosage: UNK, DOSAGE FORM: NOT SPECIFIED
     Route: 065
  20. POLYETHYLENE GLYCOL [Concomitant]
     Active Substance: POLYETHYLENE GLYCOL
     Dosage: UNK, DOSAGE FORM: NOT SPECIFIED
     Route: 065
  21. SULFAMETHOXAZOLE\TRIMETHOPRIM [Concomitant]
     Active Substance: SULFAMETHOXAZOLE\TRIMETHOPRIM
     Dosage: UNK, DOSAGE FORM: NOT SPECIFIED
     Route: 065

REACTIONS (1)
  - Febrile neutropenia [Recovered/Resolved]
